FAERS Safety Report 17193961 (Version 2)
Quarter: 2020Q1

REPORT INFORMATION
  Report Type: Report from Study
  Country: None (occurrence: US)
  Receive Date: 20191223
  Receipt Date: 20200213
  Transmission Date: 20200409
  Serious: Yes (Other)
  Sender: FDA-Public Use
  Company Number: US-ABBVIE-19K-163-3201668-00

PATIENT
  Age: 66 Year
  Sex: Female
  Weight: 48.58 kg

DRUGS (1)
  1. HUMIRA [Suspect]
     Active Substance: ADALIMUMAB
     Indication: RHEUMATOID ARTHRITIS
     Route: 058

REACTIONS (7)
  - Brain operation [Unknown]
  - Rheumatoid arthritis [Unknown]
  - Balance disorder [Not Recovered/Not Resolved]
  - Carpal tunnel syndrome [Unknown]
  - Neoplasm progression [Not Recovered/Not Resolved]
  - Wound [Unknown]
  - Wrist fracture [Unknown]

NARRATIVE: CASE EVENT DATE: 201804
